FAERS Safety Report 18608890 (Version 1)
Quarter: 2020Q4

REPORT INFORMATION
  Report Type: Spontaneous
  Country: JP (occurrence: JP)
  Receive Date: 20201213
  Receipt Date: 20201213
  Transmission Date: 20210114
  Serious: Yes (Other)
  Sender: FDA-Public Use
  Company Number: JP-SA-2020SA351747

PATIENT

DRUGS (2)
  1. AFLIBERCEPT [Suspect]
     Active Substance: AFLIBERCEPT
     Dosage: UNK
     Route: 031
  2. AFLIBERCEPT [Suspect]
     Active Substance: AFLIBERCEPT
     Indication: AGE-RELATED MACULAR DEGENERATION
     Dosage: DOSAGE UNKNOWN, 15 TIMES
     Route: 031
     Dates: start: 2017

REACTIONS (12)
  - Vision blurred [Recovered/Resolved]
  - Therapeutic product effect incomplete [Unknown]
  - Eye pain [Recovered/Resolved]
  - Vitreous opacities [Recovered/Resolved]
  - Vitreous opacities [Recovering/Resolving]
  - Keratic precipitates [Recovered/Resolved]
  - Immunisation reaction [Unknown]
  - Endophthalmitis [Recovering/Resolving]
  - Keratic precipitates [Recovering/Resolving]
  - Anterior chamber inflammation [Recovering/Resolving]
  - Endophthalmitis [Recovered/Resolved]
  - Eye pain [Recovering/Resolving]
